FAERS Safety Report 22323536 (Version 1)
Quarter: 2023Q2

REPORT INFORMATION
  Report Type: Spontaneous
  Country: US (occurrence: US)
  Receive Date: 20230516
  Receipt Date: 20230516
  Transmission Date: 20230722
  Serious: Yes (Other)
  Sender: FDA-Public Use
  Company Number: US-Accord-356225

PATIENT
  Age: 60 Year
  Sex: Female

DRUGS (2)
  1. METHOTREXATE [Suspect]
     Active Substance: METHOTREXATE
     Indication: Leptomeningeal myelomatosis
     Dosage: CYCLE 1 DAY 27
     Route: 037
  2. FULVESTRANT [Concomitant]
     Active Substance: FULVESTRANT
     Indication: Leptomeningeal myelomatosis
     Dosage: 500 MG INTRAMUSCULARLY EVERY 28 DAYS WITH A LOADING DOSE ON CYCLE 1 DAY 15
     Route: 030

REACTIONS (4)
  - Mouth ulceration [Recovering/Resolving]
  - Off label use [Unknown]
  - Asthenia [Recovering/Resolving]
  - Pancytopenia [Recovered/Resolved]
